FAERS Safety Report 6601649-8 (Version None)
Quarter: 2010Q1

REPORT INFORMATION
  Report Type: 
  Country: None (occurrence: None)
  Receive Date: 20100225
  Receipt Date: 20100215
  Transmission Date: 20100710
  Serious: Yes (Other)
  Sender: FDA-Public Use
  Company Number: US-ROCHE-685334

PATIENT
  Age: 65 Year
  Sex: Female

DRUGS (6)
  1. PEG-INTERFERON A-2A (RO 25-8310) [Suspect]
     Route: 065
  2. PEG-INTERFERON A-2A (RO 25-8310) [Suspect]
     Dosage: RE-INITIATED; DOSE REDUCED THROUGH WEEK 27
     Route: 065
  3. RIBAVIRIN [Suspect]
     Route: 065
  4. RIBAVIRIN [Suspect]
     Dosage: RE-INITIATED
     Route: 065
  5. PROCRIT [Suspect]
     Indication: DRUG USE FOR UNKNOWN INDICATION
     Dosage: DOSAGE REGIMEN: 40000 UNITS EVERY 1 TO 2 WEEKS
     Route: 058
  6. NEUPOGEN [Concomitant]
     Indication: NEUTROPENIA
     Dosage: FREQUENCY REPORTED: ONCE TO TWICE WEEKLY
     Route: 058

REACTIONS (4)
  - APLASIA PURE RED CELL [None]
  - BONE MARROW FAILURE [None]
  - INFLUENZA LIKE ILLNESS [None]
  - PANCYTOPENIA [None]
